FAERS Safety Report 9531265 (Version 1)
Quarter: 2013Q2

REPORT INFORMATION
  Report Type: Spontaneous
  Country: US (occurrence: None)
  Receive Date: 20130419
  Receipt Date: 20130419
  Transmission Date: 20140414
  Serious: Yes (Life-Threatening)
  Sender: FDA-Public Use
  Company Number: FK201300157

PATIENT
  Sex: Female
  Weight: 89.36 kg

DRUGS (12)
  1. HEPARIN SODIUM INJECTION, USP (HEPARIN SODIUM) (HEPARIN SODIUM) [Suspect]
     Indication: CORONARY ARTERY BYPASS
     Dosage: USP UNITS (NOT OTHERWISE SPECIFIED)
     Route: 042
     Dates: start: 20121219
  2. ASA [Concomitant]
  3. NITROGLYCERIN [Concomitant]
  4. PRILOSEC [Concomitant]
  5. LIPITOR [Concomitant]
  6. APIDRA [Concomitant]
  7. METOPROLOL [Concomitant]
  8. LISINOPRIL [Concomitant]
  9. PREDNISONE [Concomitant]
  10. ADVOIR [Concomitant]
  11. METFORMIN [Concomitant]
  12. GUNUVIA [Concomitant]

REACTIONS (2)
  - Anaphylactic reaction [None]
  - Hypotension [None]
